FAERS Safety Report 16800025 (Version 1)
Quarter: 2019Q4

REPORT INFORMATION
  Report Type: Spontaneous
  Country: US (occurrence: US)
  Receive Date: 20190912
  Receipt Date: 20190912
  Transmission Date: 20200122
  Serious: Yes (Other)
  Sender: FDA-Public Use
  Company Number: None

PATIENT
  Age: 25 Year
  Sex: Female
  Weight: 76.5 kg

DRUGS (7)
  1. SUMATRIPTAN. [Concomitant]
     Active Substance: SUMATRIPTAN
  2. IBUPROFEN. [Concomitant]
     Active Substance: IBUPROFEN
  3. VITAMIN D3 [Concomitant]
     Active Substance: CHOLECALCIFEROL
  4. MAGNESIUM [Concomitant]
     Active Substance: MAGNESIUM
  5. EMGALITY [Suspect]
     Active Substance: GALCANEZUMAB-GNLM
     Indication: MIGRAINE PROPHYLAXIS
     Dosage: ?          QUANTITY:1 INJECTION(S);OTHER FREQUENCY:MONTHLY;?
     Route: 058
     Dates: start: 20181201, end: 20190912
  6. XANAX [Concomitant]
     Active Substance: ALPRAZOLAM
  7. VITAMIN B12 [Concomitant]
     Active Substance: CYANOCOBALAMIN

REACTIONS (1)
  - Abnormal weight gain [None]

NARRATIVE: CASE EVENT DATE: 20190201
